FAERS Safety Report 9547261 (Version 1)
Quarter: 2013Q2

REPORT INFORMATION
  Report Type: Spontaneous
  Country: US (occurrence: None)
  Receive Date: 20130606
  Receipt Date: 20130606
  Transmission Date: 20140414
  Serious: No
  Sender: FDA-Public Use
  Company Number: 163-POMAL-13034146

PATIENT
  Age: 62 Year
  Sex: Female
  Weight: 95.26 kg

DRUGS (5)
  1. POMALYST (POMALIDOMIDE) (1 MILLIGRAM, CAPSULES) [Suspect]
     Indication: PLASMA CELL MYELOMA
     Route: 048
     Dates: start: 20130226
  2. LEXAPRO (ESCITALOPRAM OXALATE) [Concomitant]
  3. SEROQUEL (QUETIAPINE FUMARATE) [Concomitant]
  4. ASPIRINE (ACETYLSALICYLIC ACID) [Concomitant]
  5. ZOMETA (ZOLEDRONIC ACID) [Concomitant]

REACTIONS (3)
  - Muscle spasms [None]
  - Diarrhoea [None]
  - Hyperhidrosis [None]
